FAERS Safety Report 9636540 (Version 2)
Quarter: 2013Q4

REPORT INFORMATION
  Report Type: Spontaneous
  Country: US (occurrence: None)
  Receive Date: 20131017
  Receipt Date: 20131218
  Transmission Date: 20140711
  Serious: Yes (Other)
  Sender: FDA-Public Use
  Company Number: 3011632-2013-0002

PATIENT
  Sex: 0

DRUGS (2)
  1. 60:60 RINSE PART A FLUORIDE RINSE MINT FLAVOR [Suspect]
     Indication: PROPHYLAXIS
     Dosage: 2X15ML (002;004;060)
     Dates: start: 20130815
  2. 60:60 RINSE PART A FLUORIDE RINSE MINT FLAVOR [Suspect]
     Indication: DENTAL CARIES
     Dosage: 2X15ML (002;004;060)
     Dates: start: 20130815

REACTIONS (1)
  - Burning sensation [None]
